FAERS Safety Report 21075702 (Version 2)
Quarter: 2023Q1

REPORT INFORMATION
  Report Type: Report from Study
  Country: DE (occurrence: DE)
  Receive Date: 20220713
  Receipt Date: 20230320
  Transmission Date: 20230418
  Serious: Yes (Hospitalization, Other)
  Sender: FDA-Public Use
  Company Number: DE-ABBVIE-21K-062-4005453-00

PATIENT
  Age: 71 Year
  Sex: Female
  Weight: 75 kg

DRUGS (13)
  1. ADALIMUMAB [Suspect]
     Active Substance: ADALIMUMAB
     Indication: Rheumatoid arthritis
     Dosage: UNK
     Route: 058
     Dates: start: 200602, end: 201901
  2. RINVOQ [Suspect]
     Active Substance: UPADACITINIB
     Indication: Rheumatoid arthritis
     Dosage: 15 MILLIGRAM, QD
     Route: 048
     Dates: start: 20210401, end: 20210601
  3. AMLODIPINE BESYLATE [Concomitant]
     Active Substance: AMLODIPINE BESYLATE
     Indication: Hypertension
     Dosage: 5 MILLIGRAM, QD
     Route: 048
     Dates: start: 2000
  4. XARELTO [Concomitant]
     Active Substance: RIVAROXABAN
     Indication: Factor V Leiden mutation
     Dosage: 10 MILLIGRAM, QD
     Route: 048
     Dates: start: 2018
  5. VITAMIN D3 [Concomitant]
     Active Substance: CHOLECALCIFEROL
     Indication: Prophylaxis
     Dosage: 1000 INTERNATIONAL UNIT, QD
     Route: 048
     Dates: start: 2000
  6. ACETAMINOPHEN [Concomitant]
     Active Substance: ACETAMINOPHEN
     Indication: Rheumatoid arthritis
     Dosage: 500 MILLIGRAM, PRN (AS NEEDED)
     Route: 048
     Dates: start: 2015
  7. PREDNISOLONE [Concomitant]
     Active Substance: PREDNISOLONE
     Indication: Rheumatoid arthritis
     Dosage: 10 MILLIGRAM, QD
     Route: 048
     Dates: start: 20210324, end: 20220422
  8. PREDNISOLONE [Concomitant]
     Active Substance: PREDNISOLONE
     Dosage: 10 MILLIGRAM, QD
     Route: 065
     Dates: start: 20220504
  9. IODINE [Concomitant]
     Active Substance: IODINE
     Indication: Goitre
     Dosage: 200 MILLIGRAM, QD
     Route: 048
     Dates: start: 2000
  10. POTASSIUM IODIDE [Concomitant]
     Active Substance: POTASSIUM IODIDE
     Indication: Goitre
     Dosage: 200 MICROGRAM/KILOGRAM, QD
     Route: 048
     Dates: start: 2000
  11. RAMIPRIL [Concomitant]
     Active Substance: RAMIPRIL
     Indication: Hypertension
     Dosage: 10 MILLIGRAM, QD
     Route: 048
     Dates: start: 2000
  12. INFLUENZA VIRUS VACCINE [Concomitant]
     Active Substance: INFLUENZA VIRUS VACCINE
     Indication: Influenza immunisation
     Dosage: SEASONAL (START DATE:20-OCT-2021)
     Route: 065
     Dates: start: 20211020
  13. ACETAMINOPHEN [Concomitant]
     Active Substance: ACETAMINOPHEN
     Indication: Product used for unknown indication
     Dosage: 500 MILLIGRAM
     Route: 048
     Dates: start: 2015

REACTIONS (4)
  - Diffuse large B-cell lymphoma [Not Recovered/Not Resolved]
  - Listless [Not Recovered/Not Resolved]
  - Mucosal disorder [Recovered/Resolved]
  - Abdominal pain lower [Not Recovered/Not Resolved]

NARRATIVE: CASE EVENT DATE: 20210501
